FAERS Safety Report 19809255 (Version 1)
Quarter: 2021Q3

REPORT INFORMATION
  Report Type: Spontaneous
  Country: US (occurrence: US)
  Receive Date: 20210909
  Receipt Date: 20210909
  Transmission Date: 20211014
  Serious: Yes (Hospitalization)
  Sender: FDA-Public Use
  Company Number: US-EIGER BIOPHARMACEUTICALS-EIG-2021-000013

PATIENT
  Sex: Male

DRUGS (1)
  1. ZOKINVY [Suspect]
     Active Substance: LONAFARNIB
     Indication: PROGERIA
     Dosage: 50 MILLIGRAM CAPSULE, BID
     Route: 048
     Dates: start: 20210406

REACTIONS (2)
  - Skin laceration [Recovered/Resolved]
  - Fall [Recovered/Resolved]
